FAERS Safety Report 4283215-5 (Version None)
Quarter: 2004Q1

REPORT INFORMATION
  Report Type: 
  Country: None (occurrence: None)
  Receive Date: 20040129
  Receipt Date: 20040122
  Transmission Date: 20041129
  Serious: Yes (Death)
  Sender: FDA-Public Use
  Company Number: 2003189350GB

PATIENT
  Age: 70 Year
  Sex: Female
  Weight: 66.8 kg

DRUGS (13)
  1. FRAGMIN [Suspect]
     Indication: THROMBOSIS PROPHYLAXIS
     Dosage: SEE IMAGE
     Route: 058
     Dates: start: 20031122, end: 20031125
  2. CLOPIDOGREL BISULFATE [Suspect]
     Indication: ACUTE CORONARY SYNDROME
     Dosage: 75 MG, DAILY, ORAL
     Route: 048
     Dates: start: 20030616, end: 20031128
  3. ASPIRIN [Concomitant]
  4. PREDNISOLONE [Concomitant]
  5. ADIZEM [Concomitant]
  6. NICORDANDIL (NICORANDIL) [Concomitant]
  7. PRAVASTATIN [Concomitant]
  8. THYROXIN (LEVOTHYROXINE SODIUM) [Concomitant]
  9. DIDRONEL PMO [Concomitant]
  10. LANSOPRAZOLE [Concomitant]
  11. SERETIDE MITE (FLUTICASONE PROPIONATE) [Concomitant]
  12. SPIRIVA [Concomitant]
  13. SALBUTAMOL (SALBUTAMOL) [Concomitant]

REACTIONS (5)
  - HAEMOGLOBIN DECREASED [None]
  - HAEMORRHAGE [None]
  - MEDICATION ERROR [None]
  - OVERDOSE [None]
  - PULMONARY EMBOLISM [None]
